FAERS Safety Report 17129375 (Version 7)
Quarter: 2020Q1

REPORT INFORMATION
  Report Type: Spontaneous
  Country: US (occurrence: US)
  Receive Date: 20191209
  Receipt Date: 20200108
  Transmission Date: 20200409
  Serious: No
  Sender: FDA-Public Use
  Company Number: US-PFIZER INC-2019522057

PATIENT
  Age: 63 Year
  Sex: Female
  Weight: 77.11 kg

DRUGS (14)
  1. XELJANZ [Suspect]
     Active Substance: TOFACITINIB CITRATE
     Indication: LICHEN PLANUS
  2. TRETINOIN. [Concomitant]
     Active Substance: TRETINOIN
     Indication: LICHEN PLANOPILARIS
     Dosage: 0.25 %, DAILY
  3. OMEPRAZOLE. [Concomitant]
     Active Substance: OMEPRAZOLE
     Indication: GASTROOESOPHAGEAL REFLUX DISEASE
     Dosage: 20 MG, 1X/DAY
     Route: 048
  4. XELJANZ [Suspect]
     Active Substance: TOFACITINIB CITRATE
     Indication: VULVITIS
  5. CLOBETASOL PROPIONATE. [Concomitant]
     Active Substance: CLOBETASOL PROPIONATE
     Dosage: UNK, 2X/WEEK [3 TIMES A WEEK VULVARLY AND TWICE A WEEK ON HER HEAD]
  6. ROGAINE [Concomitant]
     Active Substance: MINOXIDIL
     Dosage: UNK, DAILY
     Route: 061
  7. FLEXERIL [Concomitant]
     Active Substance: CYCLOBENZAPRINE HYDROCHLORIDE
     Indication: MUSCLE SPASMS
     Dosage: 5 MG, AS NEEDED [ONCE A DAY THAT IS USUALLY IN THE EVENING]
  8. PREMARIN [Concomitant]
     Active Substance: ESTROGENS, CONJUGATED
     Indication: LICHEN SCLEROSUS
     Dosage: UNK, 2X/WEEK [BIWEEKLY, TOPICAL TO COVER THE AREA FROM THE TUBE]
     Route: 061
  9. FLUOXETINE [Concomitant]
     Active Substance: FLUOXETINE HYDROCHLORIDE
     Dosage: 20 MG, 1X/DAY
     Route: 048
  10. CLOBETASOL PROPIONATE. [Concomitant]
     Active Substance: CLOBETASOL PROPIONATE
     Indication: LICHEN SCLEROSUS
     Dosage: UNK [3 TIMES A WEEK VULVARLY AND TWICE A WEEK ON HER HEAD]
     Dates: start: 20191023
  11. XELJANZ [Suspect]
     Active Substance: TOFACITINIB CITRATE
     Indication: LICHEN PLANOPILARIS
     Dosage: 5 MG, 2X/DAY
     Route: 048
     Dates: start: 20190725
  12. XELJANZ [Suspect]
     Active Substance: TOFACITINIB CITRATE
     Indication: LICHEN SCLEROSUS
     Dosage: 5 MG, 2X/DAY
     Route: 048
  13. XELJANZ [Suspect]
     Active Substance: TOFACITINIB CITRATE
     Indication: ALOPECIA
  14. TACROLIMUS. [Concomitant]
     Active Substance: TACROLIMUS
     Indication: LICHEN PLANOPILARIS
     Dosage: UNK [5 DAYS A WEEK]
     Route: 061
     Dates: start: 20191023

REACTIONS (5)
  - Osteoporosis [Unknown]
  - Drug effective for unapproved indication [Unknown]
  - Blood cholesterol increased [Unknown]
  - Product use in unapproved indication [Unknown]
  - Off label use [Unknown]

NARRATIVE: CASE EVENT DATE: 20190725
